FAERS Safety Report 6476063-9 (Version None)
Quarter: 2009Q4

REPORT INFORMATION
  Report Type: 
  Country: None (occurrence: None)
  Receive Date: 20091204
  Receipt Date: 20091124
  Transmission Date: 20100525
  Serious: Yes (Other)
  Sender: FDA-Public Use
  Company Number: US-JNJCH-2009031031

PATIENT
  Age: 46 Year
  Sex: Female
  Weight: 66.2 kg

DRUGS (3)
  1. NEOSPORIN PLUS PAIN RELIEF MAXIMUM STRENGTH [Suspect]
     Indication: WOUND
     Dosage: TEXT:A SMALL AMOUNT - TWICE DAILY
     Route: 061
     Dates: start: 20091112, end: 20091115
  2. ATENOLOL [Concomitant]
     Indication: HYPERTENSION
     Dosage: TEXT:UNSPECIFIED - 1 DAILY
     Route: 065
  3. DARVOCET [Concomitant]
     Indication: PAIN
     Dosage: TEXT:AS NEEDED
     Route: 065

REACTIONS (4)
  - APPLICATION SITE VESICLES [None]
  - BURNING SENSATION [None]
  - OFF LABEL USE [None]
  - PAIN [None]
